FAERS Safety Report 10787989 (Version 1)
Quarter: 2015Q1

REPORT INFORMATION
  Report Type: Spontaneous
  Country: IT (occurrence: IT)
  Receive Date: 20150212
  Receipt Date: 20150212
  Transmission Date: 20150721
  Serious: Yes (Other)
  Sender: FDA-Public Use
  Company Number: IT-TEVA-528464ISR

PATIENT
  Age: 83 Year
  Sex: Female

DRUGS (7)
  1. LORAZEPAM. [Suspect]
     Active Substance: LORAZEPAM
     Indication: DEPRESSION
     Dosage: 2500 UG TOTAL
     Route: 048
     Dates: start: 20141028, end: 20141104
  2. DIBASE - 10.000 UI/ML GOCCE ORALI, SOLUZIONE [Concomitant]
     Indication: PRODUCT USED FOR UNKNOWN INDICATION
  3. LORMETAZEPAM [Suspect]
     Active Substance: LORMETAZEPAM
     Indication: DEPRESSION
     Dosage: 20 ML TOTAL
     Route: 048
     Dates: start: 20141028, end: 20141104
  4. IPAMIX 50 CONFETTI MG 2,5 [Concomitant]
     Indication: PRODUCT USED FOR UNKNOWN INDICATION
  5. MINIAS - 1 MG COMPRESSE RIVESTITE - BAYER S.P.A. [Suspect]
     Active Substance: LORMETAZEPAM
     Indication: DEPRESSION
     Dosage: 1 MG TOTAL
     Route: 048
     Dates: start: 20141028, end: 20141104
  6. XANAX [Suspect]
     Active Substance: ALPRAZOLAM
     Indication: DEPRESSION
     Dosage: 20 DF TOTAL
     Route: 048
     Dates: start: 20141028, end: 20141104
  7. LETROZOLE. [Concomitant]
     Active Substance: LETROZOLE
     Indication: PRODUCT USED FOR UNKNOWN INDICATION

REACTIONS (5)
  - Drug abuse [Recovered/Resolved]
  - Speech disorder [Recovered/Resolved]
  - Fall [Recovered/Resolved]
  - Headache [Recovered/Resolved]
  - Sopor [Recovered/Resolved]

NARRATIVE: CASE EVENT DATE: 20141104
